FAERS Safety Report 7902108-2 (Version None)
Quarter: 2011Q4

REPORT INFORMATION
  Report Type: 
  Country: None (occurrence: None)
  Receive Date: 20111108
  Receipt Date: 20111027
  Transmission Date: 20120403
  Serious: Yes (Hospitalization)
  Sender: FDA-Public Use
  Company Number: US-BAYER-2011-037054

PATIENT
  Age: 39 Year
  Sex: Female
  Weight: 68 kg

DRUGS (9)
  1. YAZ [Suspect]
     Indication: ACNE
     Dosage: UNK
     Dates: start: 20070101, end: 20080701
  2. YAZ [Suspect]
     Indication: CONTRACEPTION
  3. LANSOPRAZOLE [Concomitant]
     Dosage: UNK
     Dates: start: 20060101
  4. CLARITIN [Concomitant]
  5. YASMIN [Suspect]
     Indication: ACNE
     Dosage: UNK
     Dates: start: 20070101, end: 20080701
  6. CLINDAMYCIN [Concomitant]
  7. PENICILLIN [Concomitant]
  8. YASMIN [Suspect]
     Indication: CONTRACEPTION
  9. CITALOPRAM HYDROBROMIDE [Concomitant]
     Dosage: UNK
     Dates: start: 20070101

REACTIONS (4)
  - DEEP VEIN THROMBOSIS [None]
  - THROMBOSIS [None]
  - INJURY [None]
  - PAIN [None]
